FAERS Safety Report 8743135 (Version 3)
Quarter: 2012Q4

REPORT INFORMATION
  Report Type: Spontaneous
  Country: US (occurrence: None)
  Receive Date: 20120723
  Receipt Date: 20121026
  Transmission Date: 20130627
  Serious: Yes (Death, Hospitalization, Other)
  Sender: FDA-Public Use
  Company Number: 2012PROUSA01703

PATIENT
  Age: 81 Year
  Sex: Male
  Weight: 77.2 kg

DRUGS (9)
  1. PROVENGE [Suspect]
     Indication: PROSTATE CANCER METASTATIC
     Dosage: 250 ML, SINGLE, INTRAVENOUS
     Route: 042
     Dates: start: 20120713, end: 20120713
  2. HYDROCORTISONE (HYDROCORTISONE) [Concomitant]
  3. RAMIPRIL (RAMIPRIL) [Concomitant]
  4. ZETIA (EZETIMIBE) [Concomitant]
  5. HYDROCHLOROTHIAZIDE (HYDROCHLOROTHIAZIDE) [Concomitant]
  6. CARVEDILOL (CARVEDILOL) [Concomitant]
  7. OSTEO BI-FLEX (CHONDROITIN SULFATE, GLUCOSAMINE HYDROCHLORIDE) [Concomitant]
  8. CALCIUM (CALCIUM) [Concomitant]
  9. MULTIVITAMIN (VITAMINS NOS) [Concomitant]

REACTIONS (14)
  - Cerebellar haemorrhage [None]
  - Subarachnoid haemorrhage [None]
  - Bradycardia [None]
  - Ventricular extrasystoles [None]
  - QRS axis abnormal [None]
  - Electrocardiogram T wave amplitude decreased [None]
  - Blood glucose increased [None]
  - International normalised ratio increased [None]
  - Metastases to lung [None]
  - Malignant neoplasm progression [None]
  - Blood pressure systolic increased [None]
  - Oxygen saturation decreased [None]
  - Cardio-respiratory arrest [None]
  - Prostate cancer metastatic [None]
